FAERS Safety Report 9422690 (Version 1)
Quarter: 2013Q3

REPORT INFORMATION
  Report Type: Spontaneous
  Country: US (occurrence: US)
  Receive Date: 20130726
  Receipt Date: 20130726
  Transmission Date: 20140515
  Serious: Yes (Other)
  Sender: FDA-Public Use
  Company Number: US-MYLANLABS-2012S1022129

PATIENT
  Age: 63 Year
  Sex: Male

DRUGS (4)
  1. CLONIDINE HYDROCHLORIDE [Suspect]
     Indication: BLOOD PRESSURE INCREASED
     Route: 048
  2. CLONIDINE HYDROCHLORIDE [Suspect]
     Indication: BLOOD PRESSURE INCREASED
     Route: 048
  3. BACLOFEN [Concomitant]
     Indication: MUSCLE SPASTICITY
  4. VICODIN [Concomitant]
     Indication: PAIN

REACTIONS (3)
  - Drug effect decreased [Recovered/Resolved]
  - Blood pressure increased [Recovered/Resolved]
  - Blood pressure decreased [Not Recovered/Not Resolved]
